FAERS Safety Report 5291070-X (Version None)
Quarter: 2007Q2

REPORT INFORMATION
  Report Type: 
  Country: None (occurrence: None)
  Receive Date: 20070402
  Receipt Date: 20070320
  Transmission Date: 20071010
  Serious: Yes (Hospitalization)
  Sender: FDA-Public Use
  Company Number: 235998

PATIENT
  Age: 77 Year
  Sex: Female

DRUGS (13)
  1. RITUXAN [Suspect]
     Indication: NON-HODGKIN'S LYMPHOMA
     Dosage: 500 MG, UNK, INTRAVENOUS
     Route: 042
     Dates: start: 20061221, end: 20070105
  2. LEVOTHYROXINE SODIUM [Concomitant]
  3. ALFAROL (ALFACALCIDOL) [Concomitant]
  4. MAGNESIUM OXIDE (MAGNESIUM OXIDE) [Concomitant]
  5. ISONIAZID [Concomitant]
  6. ITRIZOLE (MICONAZOLE) [Concomitant]
  7. ZOLPIDEM TARTRATE [Concomitant]
  8. SULFAMETHOXAZOLE [Concomitant]
  9. POLAPREZINC (POLAPREZINC) [Concomitant]
  10. MENATETRANONE (MENATETRANONE) [Concomitant]
  11. ALDACTONE [Concomitant]
  12. POTASSIUM CHLORIDE [Concomitant]
  13. LASIX [Concomitant]

REACTIONS (18)
  - ADRENAL INSUFFICIENCY [None]
  - ANOREXIA [None]
  - ASTHENIA [None]
  - AUTONOMIC NERVOUS SYSTEM IMBALANCE [None]
  - BLOOD PRESSURE DECREASED [None]
  - DEHYDRATION [None]
  - DIPLOPIA [None]
  - ELECTROLYTE IMBALANCE [None]
  - FALL [None]
  - HYPERCALCAEMIA [None]
  - HYPERNATRAEMIA [None]
  - HYPOAESTHESIA [None]
  - LOSS OF CONSCIOUSNESS [None]
  - ORTHOSTATIC HYPOTENSION [None]
  - RENAL IMPAIRMENT [None]
  - SOMNOLENCE [None]
  - URINARY RETENTION [None]
  - VOMITING [None]
